FAERS Safety Report 17396712 (Version 1)
Quarter: 2020Q1

REPORT INFORMATION
  Report Type: Spontaneous
  Country: US (occurrence: US)
  Receive Date: 20200124
  Receipt Date: 20200124
  Transmission Date: 20200409
  Serious: Yes (Other)
  Sender: FDA-Public Use
  Company Number: None

PATIENT
  Age: 69 Year
  Sex: Male
  Weight: 95.25 kg

DRUGS (4)
  1. BENADRYL [Concomitant]
     Active Substance: DIPHENHYDRAMINE HYDROCHLORIDE
  2. PEPCID [Concomitant]
     Active Substance: FAMOTIDINE
  3. FISH OIL [Concomitant]
     Active Substance: FISH OIL
  4. BROMPHENIRAMINE [Suspect]
     Active Substance: BROMPHENIRAMINE
     Indication: COUGH
     Dosage: ?          QUANTITY:10 ML MILLILITRE(S);?
     Route: 048
     Dates: start: 20200103, end: 20200104

REACTIONS (3)
  - Ocular hyperaemia [None]
  - Vision blurred [None]
  - Eye discharge [None]

NARRATIVE: CASE EVENT DATE: 20200104
